FAERS Safety Report 16989503 (Version 1)
Quarter: 2019Q4

REPORT INFORMATION
  Report Type: Spontaneous
  Country: US (occurrence: US)
  Receive Date: 20190919
  Receipt Date: 20190919
  Transmission Date: 20200122
  Serious: Yes (Hospitalization)
  Sender: FDA-Public Use
  Company Number: None

PATIENT
  Age: 15 Month
  Sex: Female

DRUGS (1)
  1. NIVESTYM [Suspect]
     Active Substance: FILGRASTIM-AAFI
     Indication: NEOPLASM MALIGNANT
     Route: 058
     Dates: start: 20190808

REACTIONS (1)
  - Infection [None]

NARRATIVE: CASE EVENT DATE: 20190822
